FAERS Safety Report 6466733-0 (Version None)
Quarter: 2009Q4

REPORT INFORMATION
  Report Type: 
  Country: None (occurrence: None)
  Receive Date: 20091202
  Receipt Date: 20091130
  Transmission Date: 20100525
  Serious: Yes (Hospitalization)
  Sender: FDA-Public Use
  Company Number: DE-BAYER-200938255GPV

PATIENT
  Age: 69 Year
  Sex: Male
  Weight: 77 kg

DRUGS (8)
  1. SORAFENIB [Suspect]
     Indication: BILE DUCT CANCER
     Dosage: UNIT DOSE: 200 MG
     Route: 048
     Dates: start: 20081104
  2. GEMCITABINE [Suspect]
     Indication: BILE DUCT CANCER
     Route: 041
     Dates: start: 20081104
  3. GRANISETRON HCL [Concomitant]
     Indication: PROPHYLAXIS OF NAUSEA AND VOMITING
     Route: 042
     Dates: start: 20090210
  4. INNOHEP [Concomitant]
     Indication: ATRIAL FIBRILLATION
     Route: 058
     Dates: start: 20090811
  5. CONCOR [Concomitant]
     Indication: ATRIAL FIBRILLATION
     Route: 048
     Dates: start: 20090818
  6. DEXAMETHASONE TAB [Concomitant]
     Indication: PROPHYLAXIS OF NAUSEA AND VOMITING
     Route: 042
  7. HANDCREAM NOS [Concomitant]
     Indication: PALMAR-PLANTAR ERYTHRODYSAESTHESIA SYNDROME
     Route: 059
     Dates: start: 20090127
  8. TINZAPARIN [Concomitant]
     Route: 058

REACTIONS (1)
  - ATRIAL FIBRILLATION [None]
